FAERS Safety Report 6935123-6 (Version None)
Quarter: 2010Q3

REPORT INFORMATION
  Report Type: 
  Country: None (occurrence: None)
  Receive Date: 20100822
  Receipt Date: 20100813
  Transmission Date: 20110219
  Serious: Yes (Hospitalization)
  Sender: FDA-Public Use
  Company Number: PHHO2010US11794

PATIENT
  Sex: Female

DRUGS (3)
  1. EXELON [Suspect]
     Indication: DEMENTIA ALZHEIMER'S TYPE
     Dosage: UNK
     Route: 062
     Dates: start: 20100512, end: 20100803
  2. EXELON [Suspect]
     Dosage: NO TREATMENT
     Dates: start: 20100804, end: 20100805
  3. EXELON [Suspect]
     Dosage: UNK
     Route: 048
     Dates: start: 20100806

REACTIONS (3)
  - DELUSION [None]
  - HALLUCINATION [None]
  - PSYCHOTIC DISORDER [None]
